FAERS Safety Report 4384526-5 (Version None)
Quarter: 2004Q2

REPORT INFORMATION
  Report Type: 
  Country: None (occurrence: None)
  Receive Date: 20040610
  Receipt Date: 20040323
  Transmission Date: 20050107
  Serious: Yes (Other)
  Sender: FDA-Public Use
  Company Number: A03200400925

PATIENT
  Age: 77 Year
  Sex: Male
  Weight: 65.7716 kg

DRUGS (6)
  1. ELOXATIN [Suspect]
     Indication: COLORECTAL CANCER
     Dosage: 80 MG/M2 Q2W - INTRAVENOUS NOS
     Route: 042
     Dates: start: 20040107, end: 20040107
  2. ELOXATIN [Suspect]
     Indication: METASTASES TO LIVER
     Dosage: 80 MG/M2 Q2W - INTRAVENOUS NOS
     Route: 042
     Dates: start: 20040107, end: 20040107
  3. FLUOROURACIL [Concomitant]
  4. LEUCOVORIN [Concomitant]
  5. DOLASETRON MESILATE [Concomitant]
  6. DEXAMETHASONE [Concomitant]

REACTIONS (5)
  - BODY TEMPERATURE INCREASED [None]
  - CHILLS [None]
  - ERYTHEMA [None]
  - FLUSHING [None]
  - HYPERTENSION [None]
